FAERS Safety Report 5389265-X (Version None)
Quarter: 2007Q3

REPORT INFORMATION
  Report Type: 
  Country: None (occurrence: None)
  Receive Date: 20070717
  Receipt Date: 20070712
  Transmission Date: 20080115
  Serious: Yes (Hospitalization)
  Sender: FDA-Public Use
  Company Number: B0479346A

PATIENT
  Age: 58 Year
  Sex: Male

DRUGS (2)
  1. NOVOCEF [Suspect]
     Indication: BODY TEMPERATURE
     Route: 065
     Dates: start: 20070412, end: 20070420
  2. IBUPROFEN [Suspect]
     Indication: HEADACHE
     Route: 065
     Dates: start: 20070412, end: 20070420

REACTIONS (5)
  - ERYTHEMA MULTIFORME [None]
  - GENERALISED ERYTHEMA [None]
  - OEDEMA PERIPHERAL [None]
  - URTICARIA [None]
  - VASCULITIS [None]
